FAERS Safety Report 5313112-5 (Version None)
Quarter: 2007Q2

REPORT INFORMATION
  Report Type: 
  Country: None (occurrence: None)
  Receive Date: 20070430
  Receipt Date: 20070418
  Transmission Date: 20071010
  Serious: Yes (Hospitalization, Other)
  Sender: FDA-Public Use
  Company Number: DE-PFIZER INC-2007032194

PATIENT
  Sex: Male

DRUGS (1)
  1. SUTENT [Suspect]
     Indication: METASTATIC RENAL CELL CARCINOMA

REACTIONS (6)
  - BILE DUCT STONE [None]
  - CHOLECYSTITIS [None]
  - EPILEPSY [None]
  - LEUKOENCEPHALOPATHY [None]
  - PANCREATIC ENZYMES INCREASED [None]
  - PYREXIA [None]
